FAERS Safety Report 7931726-0 (Version None)
Quarter: 2011Q4

REPORT INFORMATION
  Report Type: 
  Country: None (occurrence: None)
  Receive Date: 20111121
  Receipt Date: 20111109
  Transmission Date: 20120403
  Serious: Yes (Hospitalization)
  Sender: FDA-Public Use
  Company Number: PHHY2011JP95238

PATIENT
  Sex: Male
  Weight: 43 kg

DRUGS (6)
  1. TACROLIMUS [Suspect]
     Indication: IMMUNOSUPPRESSION
     Dosage: UNK UKN, UNK
     Route: 048
     Dates: start: 19991110, end: 20020201
  2. MEDROL [Suspect]
     Indication: IMMUNOSUPPRESSION
     Dosage: UNK UKN, UNK
     Route: 048
     Dates: start: 19991110, end: 20090101
  3. BREDININ [Concomitant]
     Indication: IMMUNOSUPPRESSION
     Dosage: 150 MG, UNK
     Route: 048
     Dates: start: 19991101
  4. NEORAL [Suspect]
     Indication: RENAL TRANSPLANT
     Dosage: 100 MG, UNK
     Route: 048
     Dates: start: 20020101
  5. GLYBURIDE [Concomitant]
     Indication: HYPERGLYCAEMIA
     Dosage: 75 MG, UNK
     Route: 048
     Dates: start: 20090609, end: 20100901
  6. URINORM [Concomitant]
     Dosage: 25 MG, UNK
     Route: 048

REACTIONS (3)
  - TYPE 2 DIABETES MELLITUS [None]
  - GLYCOSYLATED HAEMOGLOBIN INCREASED [None]
  - GLUCOSE TOLERANCE IMPAIRED [None]
